FAERS Safety Report 9184975 (Version 1)
Quarter: 2013Q1

REPORT INFORMATION
  Report Type: Spontaneous
  Country: IT (occurrence: IT)
  Receive Date: 20130325
  Receipt Date: 20130325
  Transmission Date: 20140127
  Serious: Yes (Hospitalization)
  Sender: FDA-Public Use
  Company Number: PHHY2013IT027675

PATIENT
  Age: 12 Year
  Sex: Female

DRUGS (3)
  1. TOLEP [Suspect]
     Indication: POISONING DELIBERATE
     Dosage: 5 TABLETS (1500MG)
     Dates: start: 20121111, end: 20121111
  2. FRISIUM [Suspect]
     Indication: POISONING DELIBERATE
     Dosage: 3 CAPSULES (30MG)
     Dates: start: 20121111, end: 20121111
  3. DINTOINA [Suspect]
     Indication: POISONING DELIBERATE
     Dosage: 2 TABLETS (200MG)
     Dates: start: 20121111, end: 20121111

REACTIONS (6)
  - Bradykinesia [Recovered/Resolved]
  - Depression [Recovered/Resolved]
  - Confusional state [Recovered/Resolved]
  - Toxicity to various agents [Recovered/Resolved]
  - Poisoning deliberate [None]
  - Heart rate abnormal [None]
